FAERS Safety Report 14506231 (Version 1)
Quarter: 2018Q1

REPORT INFORMATION
  Report Type: Spontaneous
  Country: US (occurrence: US)
  Receive Date: 20180208
  Receipt Date: 20180208
  Transmission Date: 20180509
  Serious: Yes (Other)
  Sender: FDA-Public Use
  Company Number: None

PATIENT
  Age: 58 Year
  Sex: Female
  Weight: 73.94 kg

DRUGS (1)
  1. ZOLEDRONIC [Suspect]
     Active Substance: ZOLEDRONIC ACID
     Indication: OSTEOPOROSIS
     Dosage: 5 MG Q 1 YR IV
     Route: 042
     Dates: start: 20171227

REACTIONS (7)
  - Pain [None]
  - Arthralgia [None]
  - Myalgia [None]
  - Pyrexia [None]
  - Joint effusion [None]
  - Chills [None]
  - Chest pain [None]

NARRATIVE: CASE EVENT DATE: 20171228
